FAERS Safety Report 9276968 (Version 1)
Quarter: 2013Q2

REPORT INFORMATION
  Report Type: Spontaneous
  Country: CH (occurrence: CH)
  Receive Date: 20130507
  Receipt Date: 20130507
  Transmission Date: 20140414
  Serious: Yes (Other)
  Sender: FDA-Public Use
  Company Number: CH-PFIZER INC-2013077317

PATIENT
  Sex: 0

DRUGS (2)
  1. LYRICA [Suspect]
     Dosage: 150 MG, FREQUENCY UNKNOWN
  2. MORPHINE [Interacting]

REACTIONS (2)
  - Sedation [Unknown]
  - Drug interaction [Unknown]
